FAERS Safety Report 19856897 (Version 4)
Quarter: 2025Q4

REPORT INFORMATION
  Report Type: Report from Study
  Country: EU (occurrence: EU)
  Receive Date: 20210920
  Receipt Date: 20251215
  Transmission Date: 20260118
  Serious: Yes (Hospitalization)
  Sender: TAKEDA
  Company Number: EU-TAKEDA-2021TUS057727

PATIENT
  Age: 15 Year
  Sex: Male

DRUGS (10)
  1. TEDUGLUTIDE [Suspect]
     Active Substance: TEDUGLUTIDE
     Indication: Short-bowel syndrome
     Dosage: 1.6 MILLIGRAM, QD
     Dates: start: 20210301, end: 20210307
  2. TEDUGLUTIDE [Suspect]
     Active Substance: TEDUGLUTIDE
     Dosage: 1.8 MILLIGRAM, QD
     Dates: start: 20210308, end: 20221107
  3. TEDUGLUTIDE [Suspect]
     Active Substance: TEDUGLUTIDE
     Dosage: 2 MILLIGRAM, QD
     Dates: start: 20221108, end: 20240812
  4. TEDUGLUTIDE [Suspect]
     Active Substance: TEDUGLUTIDE
     Dosage: 2.2 MILLIGRAM, QD
     Dates: start: 20240813
  5. MAGNESIUM [Concomitant]
     Active Substance: MAGNESIUM
     Indication: Magnesium deficiency
     Dosage: 1 INTERNATIONAL UNIT, QD
     Dates: start: 2020, end: 20200727
  6. MAGNESIUM [Concomitant]
     Active Substance: MAGNESIUM
     Dosage: 3 INTERNATIONAL UNIT, BID
     Dates: start: 20200727, end: 202101
  7. MAGNESIUM [Concomitant]
     Active Substance: MAGNESIUM
     Dosage: 1 INTERNATIONAL UNIT, QD
     Dates: start: 202101
  8. FUNGIZONE [Concomitant]
     Active Substance: AMPHOTERICIN B
     Indication: Gastrostomy tube site complication
     Dosage: 5 MILLILITER, TID
     Dates: start: 20201006, end: 20210223
  9. ECONAZOLE NITRATE [Concomitant]
     Active Substance: ECONAZOLE NITRATE
     Indication: Gastrostomy tube site complication
     Dosage: UNK UNK, QD
     Route: 061
     Dates: start: 20200929
  10. VENOFER [Concomitant]
     Active Substance: IRON SUCROSE
     Indication: Anaemia prophylaxis
     Dosage: 90 MILLIGRAM
     Dates: start: 20200928, end: 20200928

REACTIONS (2)
  - Intentional overdose [Recovered/Resolved]
  - No adverse event [Unknown]

NARRATIVE: CASE EVENT DATE: 20210705
